FAERS Safety Report 6990784-0 (Version None)
Quarter: 2010Q3

REPORT INFORMATION
  Report Type: 
  Country: None (occurrence: None)
  Receive Date: 20100916
  Receipt Date: 20090108
  Transmission Date: 20110219
  Serious: Yes (Other)
  Sender: FDA-Public Use
  Company Number: HQWYE510709JUN03

PATIENT
  Sex: Female

DRUGS (1)
  1. PREMARIN [Suspect]
     Indication: HORMONE REPLACEMENT THERAPY
     Dosage: UNSPECIFIED DAILY
     Route: 048

REACTIONS (2)
  - BREAST CANCER FEMALE [None]
  - BREAST NEOPLASM [None]
